FAERS Safety Report 5347128-X (Version None)
Quarter: 2007Q2

REPORT INFORMATION
  Report Type: 
  Country: None (occurrence: None)
  Receive Date: 20070604
  Receipt Date: 20070523
  Transmission Date: 20071010
  Serious: Yes (Hospitalization)
  Sender: FDA-Public Use
  Company Number: US015084

PATIENT
  Age: 53 Year
  Sex: Male

DRUGS (6)
  1. GABITRIL [Suspect]
     Indication: SCHIZOPHRENIA
     Dosage: 8 MG BID ORAL
     Route: 048
     Dates: start: 20020101, end: 20020101
  2. CLOZARIL [Suspect]
     Indication: SCHIZOPHRENIA, PARANOID TYPE
     Dosage: 700 MG QD ORAL
     Route: 048
  3. OLANZAPINE [Suspect]
     Dosage: 20 MG QD
  4. GEMFIBROZIL [Suspect]
     Dosage: 1200 MG QD
  5. GLYBURIDE [Concomitant]
  6. LISINOPRIL [Concomitant]

REACTIONS (12)
  - ABNORMAL BEHAVIOUR [None]
  - APHASIA [None]
  - BLOOD GLUCOSE INCREASED [None]
  - BRAIN NEOPLASM MALIGNANT [None]
  - CEREBRAL ATROPHY [None]
  - CONFUSIONAL STATE [None]
  - GRAND MAL CONVULSION [None]
  - LOSS OF CONSCIOUSNESS [None]
  - MENTAL STATUS CHANGES [None]
  - STARING [None]
  - STATUS EPILEPTICUS [None]
  - UNRESPONSIVE TO STIMULI [None]
